FAERS Safety Report 26111928 (Version 1)
Quarter: 2025Q4

REPORT INFORMATION
  Report Type: Spontaneous
  Country: GB (occurrence: GB)
  Receive Date: 20251202
  Receipt Date: 20251202
  Transmission Date: 20260119
  Serious: Yes (Other)
  Sender: AMGEN
  Company Number: GB-ABBVIE-6559593

PATIENT
  Age: 33 Year
  Sex: Male

DRUGS (1)
  1. ADALIMUMAB [Suspect]
     Active Substance: ADALIMUMAB
     Indication: Crohn^s disease
     Dosage: UNK, QWK
     Route: 058
     Dates: start: 201908, end: 2025

REACTIONS (3)
  - Proctectomy [Unknown]
  - Sepsis [Unknown]
  - Drug ineffective [Unknown]

NARRATIVE: CASE EVENT DATE: 20220101
